FAERS Safety Report 17752436 (Version 2)
Quarter: 2021Q2

REPORT INFORMATION
  Report Type: Spontaneous
  Country: US (occurrence: US)
  Receive Date: 20200506
  Receipt Date: 20210427
  Transmission Date: 20210716
  Serious: Yes (Death, Other)
  Sender: FDA-Public Use
  Company Number: US-ASTRAZENECA-2020SE58845

PATIENT
  Age: 21892 Day
  Sex: Male
  Weight: 63 kg

DRUGS (56)
  1. NEXIUM 24HR [Suspect]
     Active Substance: ESOMEPRAZOLE MAGNESIUM
     Indication: GASTROOESOPHAGEAL REFLUX DISEASE
     Route: 048
     Dates: start: 200101, end: 201512
  2. PREVACID 24 HR [Suspect]
     Active Substance: LANSOPRAZOLE
     Indication: GASTROOESOPHAGEAL REFLUX DISEASE
     Route: 065
     Dates: start: 200101, end: 201512
  3. PRAVASTATIN. [Concomitant]
     Active Substance: PRAVASTATIN
     Indication: BLOOD CHOLESTEROL INCREASED
     Dates: start: 201205, end: 201706
  4. HEPARIN [Concomitant]
     Active Substance: HEPARIN SODIUM
     Dates: start: 201205, end: 201706
  5. RANOLAZINE. [Concomitant]
     Active Substance: RANOLAZINE
     Dates: start: 201205, end: 201706
  6. HUMULIN NOS [Concomitant]
     Active Substance: INSULIN HUMAN
     Dates: start: 201205, end: 201706
  7. TUSSIONEX PENNKINETIC [Concomitant]
     Active Substance: CHLORPHENIRAMINE\HYDROCODONE
     Dates: start: 201205, end: 201706
  8. FAMOTIDINE. [Concomitant]
     Active Substance: FAMOTIDINE
     Indication: GASTROOESOPHAGEAL REFLUX DISEASE
     Dates: start: 201703, end: 201706
  9. ASPIRIN. [Concomitant]
     Active Substance: ASPIRIN
     Dates: start: 201205, end: 201706
  10. AUGMENTIN [Concomitant]
     Active Substance: AMOXICILLIN\CLAVULANATE POTASSIUM
     Dates: start: 201205, end: 201706
  11. GLUCOPHAGE [Concomitant]
     Active Substance: METFORMIN HYDROCHLORIDE
     Dates: start: 201205, end: 201706
  12. ZETIA [Concomitant]
     Active Substance: EZETIMIBE
     Dates: start: 201205, end: 201706
  13. OXYCODONE [Concomitant]
     Active Substance: OXYCODONE
     Dates: start: 201205, end: 201706
  14. NEXIUM [Suspect]
     Active Substance: ESOMEPRAZOLE MAGNESIUM
     Indication: GASTROOESOPHAGEAL REFLUX DISEASE
     Route: 048
     Dates: start: 2001, end: 2015
  15. PREVACID [Suspect]
     Active Substance: LANSOPRAZOLE
     Indication: GASTROOESOPHAGEAL REFLUX DISEASE
     Route: 065
     Dates: start: 200101, end: 201512
  16. COZAAR [Concomitant]
     Active Substance: LOSARTAN POTASSIUM
     Indication: HYPERTENSION
     Dates: start: 199803, end: 199902
  17. LEVOTHYROXINE. [Concomitant]
     Active Substance: LEVOTHYROXINE
     Indication: THYROID DISORDER
     Dates: start: 201611, end: 201706
  18. PHENYTOIN. [Concomitant]
     Active Substance: PHENYTOIN
     Indication: BLOOD CHOLESTEROL INCREASED
     Dates: start: 201205, end: 201706
  19. IMDUR [Concomitant]
     Active Substance: ISOSORBIDE MONONITRATE
     Dates: start: 201205, end: 201706
  20. WELLBUTRIN [Concomitant]
     Active Substance: BUPROPION HYDROCHLORIDE
     Dates: start: 201205, end: 201706
  21. ACYCLOVIR. [Concomitant]
     Active Substance: ACYCLOVIR
     Dates: start: 201205, end: 201706
  22. PROTONIX [Suspect]
     Active Substance: PANTOPRAZOLE SODIUM
     Indication: GASTROOESOPHAGEAL REFLUX DISEASE
     Route: 065
     Dates: start: 200101, end: 201512
  23. ISOSORBIDE. [Concomitant]
     Active Substance: ISOSORBIDE
     Dates: start: 201205, end: 201706
  24. ALPRAZOLAM. [Concomitant]
     Active Substance: ALPRAZOLAM
     Dates: start: 201205, end: 201706
  25. NALEX [Concomitant]
     Active Substance: GUAIFENESIN\PSEUDOEPHEDRINE HYDROCHLORIDE
     Dates: start: 201205, end: 201706
  26. ALBUTEROL. [Concomitant]
     Active Substance: ALBUTEROL
     Dates: start: 201205, end: 201706
  27. FUROSEMIDE. [Concomitant]
     Active Substance: FUROSEMIDE
     Dates: start: 201205, end: 201706
  28. COREG [Concomitant]
     Active Substance: CARVEDILOL
     Dates: start: 201205, end: 201706
  29. CALCIUM [Concomitant]
     Active Substance: CALCIUM
     Dates: start: 201205, end: 201706
  30. PREVACID 24 HR [Suspect]
     Active Substance: LANSOPRAZOLE
     Indication: GASTROOESOPHAGEAL REFLUX DISEASE
     Route: 065
     Dates: start: 2003, end: 2015
  31. PROTONIX [Suspect]
     Active Substance: PANTOPRAZOLE SODIUM
     Indication: GASTROOESOPHAGEAL REFLUX DISEASE
     Dosage: GENERIC
     Route: 065
     Dates: end: 2017
  32. NORFLEX [Concomitant]
     Active Substance: ORPHENADRINE CITRATE
     Indication: MYALGIA
     Dates: start: 199802
  33. ALPRAZOLAM. [Concomitant]
     Active Substance: ALPRAZOLAM
     Indication: ANXIETY DISORDER
     Dates: start: 199803, end: 200003
  34. ZOCOR [Concomitant]
     Active Substance: SIMVASTATIN
     Indication: BLOOD CHOLESTEROL INCREASED
     Dates: start: 199803, end: 199902
  35. NORFLEX [Concomitant]
     Active Substance: ORPHENADRINE CITRATE
     Indication: INJURY
     Dates: start: 199802
  36. ALPRAZOLAM. [Concomitant]
     Active Substance: ALPRAZOLAM
     Indication: PANIC REACTION
     Dates: start: 199803, end: 200003
  37. FAMOTIDINE. [Concomitant]
     Active Substance: FAMOTIDINE
     Indication: GASTROOESOPHAGEAL REFLUX DISEASE
     Dates: start: 201703, end: 201706
  38. DILTIAZEM. [Concomitant]
     Active Substance: DILTIAZEM
     Dates: start: 201205, end: 201706
  39. NEXIUM 24HR [Suspect]
     Active Substance: ESOMEPRAZOLE MAGNESIUM
     Indication: GASTROOESOPHAGEAL REFLUX DISEASE
     Route: 048
     Dates: start: 2014, end: 2015
  40. PRILOSEC [Suspect]
     Active Substance: OMEPRAZOLE MAGNESIUM
     Indication: GASTROOESOPHAGEAL REFLUX DISEASE
     Route: 048
     Dates: start: 200101, end: 201512
  41. NITROSTAT [Concomitant]
     Active Substance: NITROGLYCERIN
     Indication: ANGINA PECTORIS
     Dates: start: 199802
  42. AMLODIPINE [Concomitant]
     Active Substance: AMLODIPINE BESYLATE
     Indication: HYPERTENSION
     Dates: start: 200802, end: 201706
  43. CARVEDILOL. [Concomitant]
     Active Substance: CARVEDILOL
     Indication: CARDIAC FAILURE
     Dates: start: 200710, end: 201704
  44. LISINOPRIL. [Concomitant]
     Active Substance: LISINOPRIL
     Indication: HYPERTENSION
     Dates: start: 200704, end: 201702
  45. MIRALAX [Concomitant]
     Active Substance: POLYETHYLENE GLYCOL 3350
     Dates: start: 201205, end: 201706
  46. NEXIUM [Suspect]
     Active Substance: ESOMEPRAZOLE MAGNESIUM
     Indication: GASTROOESOPHAGEAL REFLUX DISEASE
     Route: 048
     Dates: start: 200101, end: 201512
  47. PRILOSEC [Suspect]
     Active Substance: OMEPRAZOLE MAGNESIUM
     Indication: GASTROOESOPHAGEAL REFLUX DISEASE
     Route: 048
     Dates: start: 1998, end: 2015
  48. PRILOSEC [Suspect]
     Active Substance: OMEPRAZOLE MAGNESIUM
     Indication: GASTROOESOPHAGEAL REFLUX DISEASE
     Dosage: GENERIC
     Route: 065
     Dates: end: 2017
  49. PREVACID [Suspect]
     Active Substance: LANSOPRAZOLE
     Indication: GASTROOESOPHAGEAL REFLUX DISEASE
     Route: 065
     Dates: start: 2001, end: 2015
  50. PROTONIX [Suspect]
     Active Substance: PANTOPRAZOLE SODIUM
     Indication: GASTROOESOPHAGEAL REFLUX DISEASE
     Route: 065
     Dates: start: 2001, end: 2017
  51. VENLAFAXINE [Concomitant]
     Active Substance: VENLAFAXINE HYDROCHLORIDE
     Dates: start: 201205, end: 201706
  52. HYDROCODONE [Concomitant]
     Active Substance: HYDROCODONE
     Dates: start: 201205, end: 201706
  53. ULTRAM [Concomitant]
     Active Substance: TRAMADOL HYDROCHLORIDE
     Dates: start: 201205, end: 201706
  54. LEVEMIR [Concomitant]
     Active Substance: INSULIN DETEMIR
     Dates: start: 201205, end: 201706
  55. PLAVIX [Concomitant]
     Active Substance: CLOPIDOGREL BISULFATE
     Dates: start: 201205, end: 201706
  56. AMIODARONE [Concomitant]
     Active Substance: AMIODARONE
     Dates: start: 201205, end: 201706

REACTIONS (10)
  - Acute kidney injury [Unknown]
  - Renal tubular necrosis [Unknown]
  - Renal failure [Unknown]
  - Nephrogenic anaemia [Unknown]
  - Chronic kidney disease-mineral and bone disorder [Unknown]
  - Myocardial ischaemia [Fatal]
  - End stage renal disease [Unknown]
  - Chronic kidney disease [Fatal]
  - Organic brain syndrome [Fatal]
  - Coronary artery disease [Fatal]

NARRATIVE: CASE EVENT DATE: 20111204
